FAERS Safety Report 12134346 (Version 2)
Quarter: 2016Q1

REPORT INFORMATION
  Report Type: Report from Study
  Country: BR (occurrence: BR)
  Receive Date: 20160301
  Receipt Date: 20160316
  Transmission Date: 20160526
  Serious: Yes (Hospitalization, Other)
  Sender: FDA-Public Use
  Company Number: PHHY2015BR117109

PATIENT
  Sex: Female
  Weight: 48 kg

DRUGS (1)
  1. EXJADE [Suspect]
     Active Substance: DEFERASIROX
     Indication: IRON OVERLOAD
     Dosage: 20 MG/KG, QD (2 DF OF 500 MG, QD (IN THE MORNING))
     Route: 048
     Dates: start: 201506

REACTIONS (9)
  - Seizure [Unknown]
  - Motor dysfunction [Unknown]
  - Skin injury [Unknown]
  - Seizure [Recovered/Resolved]
  - Transient ischaemic attack [Recovered/Resolved]
  - Breast cancer [Unknown]
  - Hypersensitivity [Unknown]
  - Rash [Unknown]
  - Skin exfoliation [Unknown]
